FAERS Safety Report 17791451 (Version 1)
Quarter: 2020Q2

REPORT INFORMATION
  Report Type: Spontaneous
  Country: US (occurrence: US)
  Receive Date: 20200515
  Receipt Date: 20200515
  Transmission Date: 20200714
  Serious: No
  Sender: FDA-Public Use
  Company Number: US-JNJFOC-20200511376

PATIENT
  Sex: Male

DRUGS (13)
  1. ATORVASTATIN [Concomitant]
     Active Substance: ATORVASTATIN
  2. CALCIUM                            /00060701/ [Concomitant]
     Active Substance: CALCIUM
  3. PANTOPRAZOLE SODIUM. [Concomitant]
     Active Substance: PANTOPRAZOLE SODIUM
  4. LASIX [Concomitant]
     Active Substance: FUROSEMIDE
  5. PRESERVISION AREDS [Concomitant]
     Active Substance: MINERALS\VITAMINS
  6. FINASTERIDE. [Concomitant]
     Active Substance: FINASTERIDE
  7. METOPROLOL SUCCINATE. [Concomitant]
     Active Substance: METOPROLOL SUCCINATE
  8. FLOMAX [Concomitant]
     Active Substance: TAMSULOSIN HYDROCHLORIDE
  9. ERDAFITINIB. [Suspect]
     Active Substance: ERDAFITINIB
     Indication: PRODUCT USED FOR UNKNOWN INDICATION
     Route: 048
  10. POTASSIUM [Concomitant]
     Active Substance: POTASSIUM
  11. ERDAFITINIB. [Suspect]
     Active Substance: ERDAFITINIB
     Route: 048
  12. DIGOXIN. [Concomitant]
     Active Substance: DIGOXIN
  13. FERROUS SULFATE. [Concomitant]
     Active Substance: FERROUS SULFATE

REACTIONS (1)
  - Diarrhoea [Unknown]
